FAERS Safety Report 16265322 (Version 1)
Quarter: 2019Q2

REPORT INFORMATION
  Report Type: Spontaneous
  Country: US (occurrence: US)
  Receive Date: 20190501
  Receipt Date: 20190501
  Transmission Date: 20190711
  Serious: Yes (Other)
  Sender: FDA-Public Use
  Company Number: None

PATIENT
  Sex: Male

DRUGS (22)
  1. FOLIC ACID TAB 1000MCG [Concomitant]
  2. RASUVO [Concomitant]
     Active Substance: METHOTREXATE SODIUM
  3. VALSARTAN TAB 80MG [Concomitant]
     Active Substance: VALSARTAN
  4. ATORVASTATIN TAB 40MG [Concomitant]
  5. LEFLUNOMIDE TAB 10MG [Concomitant]
     Active Substance: LEFLUNOMIDE
  6. ENBREL [Suspect]
     Active Substance: ETANERCEPT
     Indication: RHEUMATOID ARTHRITIS
     Dosage: ?          OTHER FREQUENCY:ONCE A WEEK;?
     Route: 058
     Dates: start: 20161206
  7. HYDROCHLOROT TAB 25MG [Concomitant]
  8. BUPROPN HCL TAB 150MG XL [Concomitant]
  9. COLCHICINE CAP 0.6MG [Concomitant]
  10. DULOXETINE CAP 60MG [Concomitant]
  11. LEVETIRACETA TAB 500MG [Concomitant]
  12. BUMETANIDE TAB 1MG [Concomitant]
  13. LOSARTAN POT TAB 100MG [Concomitant]
  14. MULTI VITAMI TAB W/IRON [Concomitant]
  15. FOLIC ACID TAB 1MG [Concomitant]
  16. LORAZEPAM TAB 1MG AND 2MG [Concomitant]
  17. RECEDO GEL [Concomitant]
  18. ALEVE TAB 220MG [Concomitant]
  19. GABAPENTIN CAP 300MG [Concomitant]
     Active Substance: GABAPENTIN
  20. WELBUTRIN TAB XL 300MG [Concomitant]
  21. ARTIFICIAL SOL TEARS [Concomitant]
  22. OXYBUTYNIN TAB 10MG ER [Concomitant]

REACTIONS (2)
  - Cervical vertebral fracture [None]
  - Cerebral haemorrhage [None]
